FAERS Safety Report 7743248-0 (Version None)
Quarter: 2011Q3

REPORT INFORMATION
  Report Type: 
  Country: None (occurrence: None)
  Receive Date: 20110902
  Receipt Date: 20110823
  Transmission Date: 20111222
  Serious: Yes (Hospitalization, Disabling, Other)
  Sender: FDA-Public Use
  Company Number: 2010SP058337

PATIENT
  Age: 25 Year
  Sex: Female
  Weight: 68.0396 kg

DRUGS (4)
  1. CLARITIN [Concomitant]
  2. NUVARING [Suspect]
     Indication: CONTRACEPTION
     Dates: start: 20050101, end: 20060101
  3. NUVARING [Suspect]
     Indication: CONTRACEPTION
     Dates: start: 20070101, end: 20100308
  4. B6 [Concomitant]

REACTIONS (24)
  - MULTIPLE INJURIES [None]
  - OVARIAN CYST RUPTURED [None]
  - VAGINAL HAEMATOMA [None]
  - JOINT INJURY [None]
  - HEAD INJURY [None]
  - IMPAIRED WORK ABILITY [None]
  - DEPRESSION [None]
  - MIGRAINE [None]
  - FIBRIN D DIMER INCREASED [None]
  - MENTAL DISORDER [None]
  - POST-TRAUMATIC NECK SYNDROME [None]
  - CYST [None]
  - PLEURAL EFFUSION [None]
  - THROMBOSIS [None]
  - COGNITIVE DISORDER [None]
  - SYNOVIAL CYST [None]
  - FIBROCYSTIC BREAST DISEASE [None]
  - PULMONARY EMBOLISM [None]
  - VAGINAL ABSCESS [None]
  - PULMONARY INFARCTION [None]
  - FALL [None]
  - EMOTIONAL DISORDER [None]
  - DRUG LEVEL INCREASED [None]
  - NORMOCHROMIC NORMOCYTIC ANAEMIA [None]
